FAERS Safety Report 11336060 (Version 3)
Quarter: 2016Q1

REPORT INFORMATION
  Report Type: Spontaneous
  Country: JP (occurrence: JP)
  Receive Date: 20150804
  Receipt Date: 20160119
  Transmission Date: 20160525
  Serious: Yes (Hospitalization)
  Sender: FDA-Public Use
  Company Number: PHJP2015JP009232

PATIENT
  Age: 34 Year
  Sex: Female

DRUGS (14)
  1. SULPIRIDE [Interacting]
     Active Substance: SULPIRIDE
     Indication: RESTLESSNESS
  2. LORAZEPAM. [Interacting]
     Active Substance: LORAZEPAM
     Indication: DEPRESSION
  3. LORAZEPAM. [Interacting]
     Active Substance: LORAZEPAM
     Indication: RESTLESSNESS
  4. MEDROL [Concomitant]
     Active Substance: METHYLPREDNISOLONE
     Indication: PRODUCT USED FOR UNKNOWN INDICATION
     Dosage: 8 MG, UNK
     Route: 048
     Dates: start: 20141027
  5. CLOMIPRAMINE [Interacting]
     Active Substance: CLOMIPRAMINE
     Indication: RESTLESSNESS
  6. CELLCEPT [Concomitant]
     Active Substance: MYCOPHENOLATE MOFETIL\MYCOPHENOLATE MOFETIL HYDROCHLORIDE
     Indication: PRODUCT USED FOR UNKNOWN INDICATION
     Dosage: 1500 MG, UNK
     Route: 048
     Dates: start: 20141027
  7. NEORAL [Interacting]
     Active Substance: CYCLOSPORINE
     Indication: IMMUNOSUPPRESSANT DRUG THERAPY
  8. CLOMIPRAMINE [Interacting]
     Active Substance: CLOMIPRAMINE
     Indication: DEPRESSION
  9. SULPIRIDE [Interacting]
     Active Substance: SULPIRIDE
     Indication: ANXIETY
     Dosage: 50 MG, BID
     Route: 065
     Dates: start: 20141111
  10. SULPIRIDE [Interacting]
     Active Substance: SULPIRIDE
     Indication: DEPRESSION
  11. GRACEPTOR [Concomitant]
     Active Substance: TACROLIMUS
     Indication: PRODUCT USED FOR UNKNOWN INDICATION
     Route: 048
     Dates: start: 20141226
  12. LORAZEPAM. [Interacting]
     Active Substance: LORAZEPAM
     Indication: ANXIETY
     Dosage: 500 MG, PRN
     Route: 048
     Dates: start: 20141027
  13. NEORAL [Interacting]
     Active Substance: CYCLOSPORINE
     Indication: RENAL TRANSPLANT
     Dosage: 350 MG, QD
     Route: 048
     Dates: start: 20141027, end: 20141225
  14. CLOMIPRAMINE [Suspect]
     Active Substance: CLOMIPRAMINE
     Indication: ANXIETY
     Dosage: 25 MG, QD
     Route: 065
     Dates: start: 20141102

REACTIONS (7)
  - Self-induced vomiting [Not Recovered/Not Resolved]
  - Drug interaction [Unknown]
  - Decreased appetite [Not Recovered/Not Resolved]
  - Restlessness [Recovered/Resolved]
  - Anxiety [Recovered/Resolved]
  - Kidney transplant rejection [Recovering/Resolving]
  - Immunosuppressant drug level increased [Recovered/Resolved]

NARRATIVE: CASE EVENT DATE: 20141219
